FAERS Safety Report 16655868 (Version 1)
Quarter: 2019Q3

REPORT INFORMATION
  Report Type: Spontaneous
  Country: AT (occurrence: AT)
  Receive Date: 20190801
  Receipt Date: 20190801
  Transmission Date: 20191004
  Serious: Yes (Death, Hospitalization)
  Sender: FDA-Public Use
  Company Number: AT-FERRINGPH-2005FE00676

PATIENT

DRUGS (1)
  1. OCTOSTIM [Suspect]
     Active Substance: DESMOPRESSIN ACETATE
     Indication: FACTOR VIII DEFICIENCY
     Route: 042

REACTIONS (4)
  - Muscle spasms [Fatal]
  - Blood pressure decreased [Fatal]
  - Nausea [Fatal]
  - Cardiac arrest [Fatal]

NARRATIVE: CASE EVENT DATE: 20051004
